FAERS Safety Report 5457653-9 (Version None)
Quarter: 2007Q3

REPORT INFORMATION
  Report Type: 
  Country: None (occurrence: None)
  Receive Date: 20070918
  Receipt Date: 20070911
  Transmission Date: 20080115
  Serious: Yes (Other)
  Sender: FDA-Public Use
  Company Number: US-PFIZER INC-2007075249

PATIENT
  Sex: Male
  Weight: 127 kg

DRUGS (1)
  1. BEXTRA [Suspect]

REACTIONS (3)
  - CELLULITIS [None]
  - ERYTHEMA [None]
  - SKIN LESION [None]
